APPROVED DRUG PRODUCT: FLUDARABINE PHOSPHATE
Active Ingredient: FLUDARABINE PHOSPHATE
Strength: 50MG/VIAL
Dosage Form/Route: INJECTABLE;INJECTION
Application: A077790 | Product #001
Applicant: HOSPIRA WORLDWIDE, INC
Approved: Apr 6, 2007 | RLD: No | RS: No | Type: DISCN